FAERS Safety Report 6042996-0 (Version None)
Quarter: 2009Q1

REPORT INFORMATION
  Report Type: 
  Country: None (occurrence: None)
  Receive Date: 20090119
  Receipt Date: 20090113
  Transmission Date: 20090719
  Serious: Yes (Hospitalization)
  Sender: FDA-Public Use
  Company Number: JP-BAYER-200910115BYL

PATIENT
  Age: 79 Year
  Sex: Male

DRUGS (1)
  1. MAGNEVIST [Suspect]
     Indication: NUCLEAR MAGNETIC RESONANCE IMAGING
     Route: 042
     Dates: start: 20081031, end: 20081031

REACTIONS (5)
  - DYSARTHRIA [None]
  - DYSPNOEA [None]
  - PRURITUS [None]
  - SNEEZING [None]
  - TREMOR [None]
